FAERS Safety Report 9342637 (Version 1)
Quarter: 2013Q2

REPORT INFORMATION
  Report Type: Spontaneous
  Country: US (occurrence: US)
  Receive Date: 20130611
  Receipt Date: 20130611
  Transmission Date: 20140414
  Serious: No
  Sender: FDA-Public Use
  Company Number: US-PFIZER INC-2013171743

PATIENT
  Sex: 0

DRUGS (1)
  1. ZITHROMAX [Suspect]
     Dosage: 250 MG, UNK

REACTIONS (4)
  - Palpitations [Unknown]
  - Dyspnoea [Unknown]
  - Blood potassium decreased [Unknown]
  - Product shape issue [Unknown]
